FAERS Safety Report 24407769 (Version 2)
Quarter: 2024Q4

REPORT INFORMATION
  Report Type: Report from Study
  Country: CA (occurrence: CA)
  Receive Date: 20241007
  Receipt Date: 20241026
  Transmission Date: 20250115
  Serious: Yes (Other)
  Sender: ALEXION PHARMACEUTICALS
  Company Number: CA-AstraZeneca-CH-00709651A

PATIENT
  Age: 86 Year

DRUGS (13)
  1. TEZEPELUMAB [Suspect]
     Active Substance: TEZEPELUMAB
     Indication: Asthma
     Dosage: 210 MILLIGRAM
  2. TEZEPELUMAB [Suspect]
     Active Substance: TEZEPELUMAB
  3. AMLODIPINE [Concomitant]
     Active Substance: AMLODIPINE BESYLATE
     Dosage: 1 TABLET AT BEDTIME
     Route: 065
  4. BREO ELLIPTA [Concomitant]
     Active Substance: FLUTICASONE FUROATE\VILANTEROL TRIFENATATE
     Dosage: UNK
  5. PANTOPRAZOLE SODIUM [Concomitant]
     Active Substance: PANTOPRAZOLE SODIUM
     Dosage: 40 MILLIGRAM
  6. VENTOLIN [Concomitant]
     Active Substance: ALBUTEROL SULFATE
     Dosage: UNK
  7. OMNARIS [Concomitant]
     Active Substance: CICLESONIDE
  8. OLMESARTAN [Concomitant]
     Active Substance: OLMESARTAN
  9. LEVOTHYROXINE [Concomitant]
     Active Substance: LEVOTHYROXINE
  10. DOMPERIDONE [Concomitant]
     Active Substance: DOMPERIDONE
     Dosage: 1 TABLET TWICE DAILY 1/2HR BEFORE MEAL
  11. FLUTICASONE [Concomitant]
     Active Substance: FLUTICASONE
  12. ADVAIR HFA [Concomitant]
     Active Substance: FLUTICASONE PROPIONATE\SALMETEROL XINAFOATE
     Dosage: 25 MICROGRAM,  2 PUFFS TWICE DAILY
  13. SPIRIVA RESPIMAT [Concomitant]
     Active Substance: TIOTROPIUM BROMIDE
     Dosage: 2.5 MICROGRAM,  2 PUFFS DAILY

REACTIONS (2)
  - Blood pressure increased [Recovering/Resolving]
  - Atrioventricular block [Not Recovered/Not Resolved]
